FAERS Safety Report 9257081 (Version 3)
Quarter: 2014Q1

REPORT INFORMATION
  Report Type: Spontaneous
  Country: US (occurrence: US)
  Receive Date: 20130426
  Receipt Date: 20140213
  Transmission Date: 20141002
  Serious: Yes (Hospitalization)
  Sender: FDA-Public Use
  Company Number: US-BAYER-2013-049337

PATIENT
  Age: 30 Year
  Sex: Female
  Weight: 72.56 kg

DRUGS (4)
  1. MIRENA [Suspect]
     Indication: CONTRACEPTION
     Dosage: 20 MCG/24HR, CONT
     Route: 015
     Dates: start: 20110104, end: 20110331
  2. MOTRIN [Concomitant]
     Indication: DYSMENORRHOEA
     Dosage: UNK
     Dates: start: 20110131
  3. IRON [Concomitant]
  4. PRENATAL VITAMINS [Concomitant]

REACTIONS (13)
  - Device dislocation [None]
  - Uterine perforation [None]
  - Device breakage [None]
  - Pulmonary oedema [None]
  - Complication of device removal [None]
  - Procedural haemorrhage [None]
  - Haemoptysis [None]
  - Complication of device insertion [None]
  - Injury [None]
  - Abdominal pain [None]
  - Emotional distress [None]
  - Hypoxia [None]
  - Device issue [None]
